FAERS Safety Report 5923567-0 (Version None)
Quarter: 2008Q4

REPORT INFORMATION
  Report Type: 
  Country: None (occurrence: None)
  Receive Date: 20081020
  Receipt Date: 20081009
  Transmission Date: 20090506
  Serious: Yes (Other)
  Sender: FDA-Public Use
  Company Number: PHBS2008JP05993

PATIENT
  Age: 29 Year
  Sex: Female
  Weight: 54.5 kg

DRUGS (17)
  1. CYCLOSPORINE [Suspect]
     Indication: TAKAYASU'S ARTERITIS
     Dosage: 100 MG/DAY
  2. PREDNISOLONE [Suspect]
     Indication: TAKAYASU'S ARTERITIS
     Dosage: 20 MG/DAY
  3. PREDNISOLONE [Suspect]
     Dosage: 50 MG/DAY
  4. PREDNISOLONE [Suspect]
     Dosage: 15 MG/DAY
  5. MIANSERIN [Suspect]
     Indication: INSOMNIA
     Dosage: 10 MG/DAY
  6. ARIPIPRAZOLE [Concomitant]
     Dosage: 3 MG/DAY
  7. ARIPIPRAZOLE [Concomitant]
     Dosage: 6 MG/DAY
  8. SERTRALINE [Concomitant]
     Indication: DEPRESSION
     Dosage: 100 MG/DAY
  9. PAROXETINE HCL [Concomitant]
     Indication: DEPRESSION
     Dosage: 20 MG/DAY
  10. PAROXETINE HCL [Concomitant]
     Dosage: 30 MG/DAY
  11. ASPIRIN [Concomitant]
     Dosage: 100 MG/DAY
  12. WARFARIN SODIUM [Concomitant]
     Dosage: 2.5 MG/DAY
  13. BERAPROST [Concomitant]
     Dosage: 60 MG/DAY
  14. ALENDRONATE SODIUM [Concomitant]
     Dosage: 5 MG/DAY
  15. FAMOTIDINE [Concomitant]
     Dosage: 20 MG/DAY
  16. FLUNITRAZEPAM [Concomitant]
     Indication: DEPRESSION
     Dosage: 4 MG/DAY
  17. BROTIZOLAM [Concomitant]
     Indication: DEPRESSION
     Dosage: 0.25 MG/DAY

REACTIONS (10)
  - AFFECTIVE DISORDER [None]
  - ANXIETY [None]
  - DEPRESSION [None]
  - HYPERPHAGIA [None]
  - INSOMNIA [None]
  - MERYCISM [None]
  - OBESITY [None]
  - TEARFULNESS [None]
  - WEIGHT DECREASED [None]
  - WEIGHT INCREASED [None]
